FAERS Safety Report 15364962 (Version 1)
Quarter: 2018Q3

REPORT INFORMATION
  Report Type: Report from Study
  Country: NL (occurrence: NL)
  Receive Date: 20180910
  Receipt Date: 20180910
  Transmission Date: 20181010
  Serious: Yes (Other)
  Sender: FDA-Public Use
  Company Number: NL-TEVA-2018-NL-950396

PATIENT
  Age: 24 Year
  Sex: Female

DRUGS (1)
  1. VITAMIN B6 [Suspect]
     Active Substance: PYRIDOXINE HYDROCHLORIDE
     Indication: VITAMIN SUPPLEMENTATION
     Dosage: 75 MILLIGRAM DAILY;
     Route: 065

REACTIONS (1)
  - Neuropathy peripheral [Recovering/Resolving]
